FAERS Safety Report 5825548-4 (Version None)
Quarter: 2008Q3

REPORT INFORMATION
  Report Type: 
  Country: None (occurrence: None)
  Receive Date: 20080729
  Receipt Date: 20080722
  Transmission Date: 20090109
  Serious: Yes (Other)
  Sender: FDA-Public Use
  Company Number: US-AMGEN-QUU296295

PATIENT
  Sex: Female

DRUGS (7)
  1. NEULASTA [Suspect]
     Indication: CHEMOTHERAPY
     Route: 065
     Dates: start: 20080721, end: 20080721
  2. CARBOPLATIN [Concomitant]
     Dates: start: 20080719
  3. ADVAIR DISKUS 100/50 [Concomitant]
  4. ALLEGRA [Concomitant]
  5. SYNTHROID [Concomitant]
  6. PACLITAXEL [Concomitant]
     Dates: start: 20080613
  7. VICODIN [Concomitant]

REACTIONS (2)
  - DYSPNOEA [None]
  - URTICARIA [None]
